FAERS Safety Report 17573375 (Version 1)
Quarter: 2020Q1

REPORT INFORMATION
  Report Type: Spontaneous
  Country: US (occurrence: US)
  Receive Date: 20200323
  Receipt Date: 20200323
  Transmission Date: 20200409
  Serious: Yes (Other)
  Sender: FDA-Public Use
  Company Number: US-PFIZER INC-2020121515

PATIENT
  Age: 51 Year
  Sex: Female
  Weight: 111.13 kg

DRUGS (1)
  1. NEURONTIN [Suspect]
     Active Substance: GABAPENTIN
     Indication: NEURALGIA
     Dosage: 100 MG, 1X/DAY
     Route: 048
     Dates: start: 2007, end: 202002

REACTIONS (6)
  - Off label use [Unknown]
  - Foot fracture [Unknown]
  - Cervix carcinoma [Unknown]
  - Product use in unapproved indication [Unknown]
  - Rib fracture [Unknown]
  - Staphylococcal infection [Unknown]

NARRATIVE: CASE EVENT DATE: 2013
